FAERS Safety Report 5228992-1 (Version None)
Quarter: 2007Q1

REPORT INFORMATION
  Report Type: 
  Country: None (occurrence: None)
  Receive Date: 20070205
  Receipt Date: 20070123
  Transmission Date: 20070707
  Serious: Yes (Other)
  Sender: FDA-Public Use
  Company Number: US-ELI_LILLY_AND_COMPANY-US200701004485

PATIENT
  Sex: Male

DRUGS (3)
  1. CYMBALTA [Suspect]
     Dosage: 60 MG, UNK
     Dates: start: 20061201
  2. DILANTIN [Concomitant]
     Dosage: 400 MG, QOD
  3. DILANTIN [Concomitant]
     Dosage: 500 MG, QOD

REACTIONS (1)
  - DRUG TOXICITY [None]
